FAERS Safety Report 15937666 (Version 2)
Quarter: 2019Q2

REPORT INFORMATION
  Report Type: Spontaneous
  Country: CN (occurrence: CN)
  Receive Date: 20190208
  Receipt Date: 20190403
  Transmission Date: 20190711
  Serious: Yes (Death, Other)
  Sender: FDA-Public Use
  Company Number: CN-ASTRAZENECA-2019SE20850

PATIENT
  Age: 18198 Day
  Sex: Female

DRUGS (1)
  1. LYNPARZA [Suspect]
     Active Substance: OLAPARIB
     Indication: OVARIAN EPITHELIAL CANCER
     Dosage: 300MG/TIME
     Route: 048
     Dates: start: 20181114, end: 20190316

REACTIONS (3)
  - Organ failure [Fatal]
  - Intestinal obstruction [Recovering/Resolving]
  - Lung infection [Fatal]

NARRATIVE: CASE EVENT DATE: 20190316
